FAERS Safety Report 5262169-9 (Version None)
Quarter: 2007Q1

REPORT INFORMATION
  Report Type: 
  Country: None (occurrence: None)
  Receive Date: 20070311
  Receipt Date: 20070228
  Transmission Date: 20070707
  Serious: Yes (Other)
  Sender: FDA-Public Use
  Company Number: 2006UW22205

PATIENT
  Age: 557 Month
  Sex: Female
  Weight: 75.9 kg

DRUGS (5)
  1. SEROQUEL [Suspect]
     Indication: ANXIETY
     Route: 048
     Dates: start: 20040101, end: 20060101
  2. SEROQUEL [Suspect]
     Indication: INSOMNIA
     Route: 048
     Dates: start: 20040101, end: 20060101
  3. LEXAPRO [Concomitant]
     Dates: start: 20030101
  4. METHADONE HCL [Concomitant]
     Dates: start: 20000101, end: 20030101
  5. HEROIN [Concomitant]
     Dates: start: 20000101, end: 20030101

REACTIONS (2)
  - COLON CANCER METASTATIC [None]
  - DIABETES MELLITUS NON-INSULIN-DEPENDENT [None]
